FAERS Safety Report 16961193 (Version 2)
Quarter: 2019Q4

REPORT INFORMATION
  Report Type: Spontaneous
  Country: GB (occurrence: GB)
  Receive Date: 20191025
  Receipt Date: 20191111
  Transmission Date: 20200122
  Serious: Yes (Other)
  Sender: FDA-Public Use
  Company Number: GB-CELGENEUS-GBR-20191006721

PATIENT
  Age: 26 Year
  Sex: Male

DRUGS (2)
  1. OTEZLA [Suspect]
     Active Substance: APREMILAST
     Indication: PSORIASIS
     Dosage: 60 MILLIGRAM
     Route: 048
     Dates: start: 20190610, end: 201910
  2. OTEZLA [Suspect]
     Active Substance: APREMILAST
     Dosage: DOSE REDUCED
     Route: 048
     Dates: start: 20191008, end: 20191016

REACTIONS (2)
  - Depression [Recovering/Resolving]
  - Suicidal ideation [Recovering/Resolving]
